FAERS Safety Report 5921528-9 (Version None)
Quarter: 2008Q4

REPORT INFORMATION
  Report Type: 
  Country: None (occurrence: None)
  Receive Date: 20081017
  Receipt Date: 20081007
  Transmission Date: 20090506
  Serious: Yes (Death, Other)
  Sender: FDA-Public Use
  Company Number: GB-JNJFOC-20081001772

PATIENT
  Sex: Male
  Weight: 87 kg

DRUGS (9)
  1. REMICADE [Suspect]
     Route: 042
  2. REMICADE [Suspect]
     Indication: RHEUMATOID ARTHRITIS
     Route: 042
  3. VOLTAREN [Concomitant]
  4. SLOW-K [Concomitant]
  5. FOLIC ACID [Concomitant]
  6. ACETAMINOPHEN W/ CODEINE [Concomitant]
  7. AMILORIDE HYDROCHLORIDE [Concomitant]
  8. PREDNISOLONE [Concomitant]
  9. METHOTREXATE SODIUM [Concomitant]
     Indication: RHEUMATOID ARTHRITIS

REACTIONS (1)
  - DEATH [None]
